FAERS Safety Report 22296013 (Version 1)
Quarter: 2023Q2

REPORT INFORMATION
  Report Type: Spontaneous
  Country: IT (occurrence: IT)
  Receive Date: 20230508
  Receipt Date: 20230508
  Transmission Date: 20230722
  Serious: Yes (Hospitalization)
  Sender: FDA-Public Use
  Company Number: None

PATIENT
  Age: 40 Year
  Sex: Male

DRUGS (4)
  1. ISONIAZID [Suspect]
     Active Substance: ISONIAZID
     Indication: Tuberculosis
     Dosage: 200 MG, BID
     Route: 048
     Dates: start: 20230407, end: 20230426
  2. RIFAMPIN [Suspect]
     Active Substance: RIFAMPIN
     Indication: Tuberculosis
     Dosage: 300 MG, BID
     Route: 048
     Dates: start: 20230407, end: 20230426
  3. PYRAZINAMIDE [Suspect]
     Active Substance: PYRAZINAMIDE
     Indication: Tuberculosis
     Dosage: 500 MG, TID
     Route: 048
     Dates: start: 20230407, end: 20230426
  4. ETHAMBUTOL HYDROCHLORIDE [Concomitant]
     Active Substance: ETHAMBUTOL HYDROCHLORIDE
     Indication: Tuberculosis
     Dosage: 400 MG, TID
     Route: 048
     Dates: start: 20230407, end: 20230426

REACTIONS (1)
  - Hypertransaminasaemia [Not Recovered/Not Resolved]

NARRATIVE: CASE EVENT DATE: 20230426
